FAERS Safety Report 24125332 (Version 1)
Quarter: 2024Q3

REPORT INFORMATION
  Report Type: Report from Study
  Country: AR (occurrence: AR)
  Receive Date: 20240723
  Receipt Date: 20240723
  Transmission Date: 20241017
  Serious: Yes (Hospitalization)
  Sender: JOHNSON AND JOHNSON
  Company Number: AR-JNJFOC-20240757788

PATIENT
  Age: 58 Year
  Sex: Female

DRUGS (1)
  1. SIMPONI [Suspect]
     Active Substance: GOLIMUMAB
     Indication: Rheumatoid arthritis
     Dosage: LAST ADMINISTRATION DATE: MAY-2024
     Route: 041

REACTIONS (3)
  - Hernia repair [Recovered/Resolved]
  - Herpes virus infection [Recovering/Resolving]
  - Underweight [Recovered/Resolved]

NARRATIVE: CASE EVENT DATE: 20240328
